FAERS Safety Report 5863137-6 (Version None)
Quarter: 2008Q3

REPORT INFORMATION
  Report Type: 
  Country: None (occurrence: None)
  Receive Date: 20080828
  Receipt Date: 20080820
  Transmission Date: 20090109
  Serious: Yes (Hospitalization, Other)
  Sender: FDA-Public Use
  Company Number: DE-JNJFOC-20080804322

PATIENT
  Age: 77 Year
  Sex: Male

DRUGS (6)
  1. TAVANIC [Suspect]
     Indication: NASOPHARYNGITIS
     Route: 048
  2. VOTUM [Concomitant]
     Indication: HYPERTENSION
     Dosage: EVERY MORNING
     Route: 048
  3. VERAPAMIL [Concomitant]
     Indication: CHRONIC OBSTRUCTIVE PULMONARY DISEASE
     Dosage: AS NEEDED
     Route: 048
  4. PREDNISONE TAB [Concomitant]
     Indication: CHRONIC OBSTRUCTIVE PULMONARY DISEASE
     Dosage: AS NEEDED
     Route: 048
  5. VIANI [Concomitant]
     Indication: CHRONIC OBSTRUCTIVE PULMONARY DISEASE
     Dosage: MORNING AND EVENING
     Route: 055
  6. SPIRIVA [Concomitant]
     Indication: CHRONIC OBSTRUCTIVE PULMONARY DISEASE
     Dosage: EVERY MORNING
     Route: 055

REACTIONS (3)
  - LUMBOSACRAL PLEXUS LESION [None]
  - MUSCULAR WEAKNESS [None]
  - TENDON RUPTURE [None]
